FAERS Safety Report 14251054 (Version 1)
Quarter: 2017Q4

REPORT INFORMATION
  Report Type: Spontaneous
  Country: FR (occurrence: FR)
  Receive Date: 20171205
  Receipt Date: 20171205
  Transmission Date: 20180321
  Serious: Yes (Other)
  Sender: FDA-Public Use
  Company Number: FR-MERCK KGAA-2036658

PATIENT
  Age: 52 Year
  Sex: Female

DRUGS (2)
  1. NOVOTHYROX [Suspect]
     Active Substance: LEVOTHYROXINE SODIUM
     Dates: start: 20170710
  2. NOVOTHYROX [Suspect]
     Active Substance: LEVOTHYROXINE SODIUM
     Indication: THYROID DISORDER

REACTIONS (25)
  - Pain [None]
  - Myalgia [Not Recovered/Not Resolved]
  - Arthralgia [None]
  - Muscle spasms [None]
  - Asthenia [None]
  - Decreased appetite [None]
  - Fatigue [None]
  - Vertigo [None]
  - Irritability [None]
  - Dyspareunia [None]
  - Social avoidant behaviour [None]
  - Nausea [None]
  - Nervousness [None]
  - Blood thyroid stimulating hormone increased [Recovered/Resolved]
  - Rectal haemorrhage [None]
  - Self esteem decreased [None]
  - Loss of libido [None]
  - Mood swings [None]
  - Migraine [None]
  - Abnormal sensation in eye [None]
  - Hyperhidrosis [None]
  - Burning sensation [None]
  - Alopecia [None]
  - Haemorrhoids [None]
  - Insomnia [None]

NARRATIVE: CASE EVENT DATE: 20170628
